FAERS Safety Report 11266787 (Version 3)
Quarter: 2015Q4

REPORT INFORMATION
  Report Type: Spontaneous
  Country: JP (occurrence: JP)
  Receive Date: 20150713
  Receipt Date: 20151119
  Transmission Date: 20160304
  Serious: Yes (Death, Other)
  Sender: FDA-Public Use
  Company Number: JP-BAYER-2015-372016

PATIENT
  Age: 65 Year
  Sex: Female

DRUGS (7)
  1. FERROUS SULFATE [Concomitant]
     Active Substance: FERROUS SULFATE\FERROUS SULFATE, DRIED
     Dosage: 210 MG, BID
     Route: 048
  2. LOXONIN [Concomitant]
     Active Substance: LOXOPROFEN SODIUM
     Dosage: 180 MG, TID
     Route: 048
  3. AMLODIN [Concomitant]
     Active Substance: AMLODIPINE BESYLATE
     Dosage: 5 MG, QD
     Route: 048
  4. LYRICA [Concomitant]
     Active Substance: PREGABALIN
     Dosage: 75 MG, QD
     Route: 048
  5. STIVARGA [Suspect]
     Active Substance: REGORAFENIB
     Indication: ANAL CANCER
     Dosage: 80 MG, QD
     Route: 048
     Dates: start: 20150530, end: 20150605
  6. LENDORMIN [Suspect]
     Active Substance: BROTIZOLAM
     Dosage: 0.25 MG, QD
     Route: 048
  7. PARIET [Concomitant]
     Active Substance: RABEPRAZOLE SODIUM
     Dosage: 10 MG, QD
     Route: 048

REACTIONS (5)
  - Acute kidney injury [Fatal]
  - Colorectal cancer [Fatal]
  - Liver function test abnormal [Unknown]
  - Febrile neutropenia [Unknown]
  - Hyperkalaemia [Fatal]

NARRATIVE: CASE EVENT DATE: 2015
